FAERS Safety Report 16569986 (Version 1)
Quarter: 2019Q3

REPORT INFORMATION
  Report Type: Spontaneous
  Country: US (occurrence: US)
  Receive Date: 20190715
  Receipt Date: 20190715
  Transmission Date: 20191004
  Serious: Yes (Other)
  Sender: FDA-Public Use
  Company Number: US-GW PHARMA-201906USGW2064

PATIENT

DRUGS (1)
  1. EPIDIOLEX [Suspect]
     Active Substance: CANNABIDIOL
     Indication: SEIZURE
     Dosage: 150 MILLIGRAM, TID
     Route: 048
     Dates: start: 20190201

REACTIONS (2)
  - Respiratory symptom [Unknown]
  - Metapneumovirus infection [Unknown]

NARRATIVE: CASE EVENT DATE: 20190616
